FAERS Safety Report 4594500-1 (Version None)
Quarter: 2005Q1

REPORT INFORMATION
  Report Type: 
  Country: None (occurrence: None)
  Receive Date: 20050301
  Receipt Date: 20040401
  Transmission Date: 20050727
  Serious: No
  Sender: FDA-Public Use
  Company Number: US-GLAXOSMITHKLINE-A0505582A

PATIENT
  Age: 38 Year
  Sex: Female

DRUGS (1)
  1. VALTREX [Suspect]
     Route: 048
     Dates: start: 20040331, end: 20040331

REACTIONS (2)
  - PRURITUS [None]
  - URTICARIA [None]
